FAERS Safety Report 20370120 (Version 6)
Quarter: 2025Q2

REPORT INFORMATION
  Report Type: Spontaneous
  Country: US (occurrence: US)
  Receive Date: 20220124
  Receipt Date: 20250502
  Transmission Date: 20250717
  Serious: No
  Sender: BIOGEN
  Company Number: US-BIOGEN-2022BI01085187

PATIENT
  Age: 58 Year
  Sex: Female

DRUGS (19)
  1. VUMERITY [Suspect]
     Active Substance: DIROXIMEL FUMARATE
     Indication: Multiple sclerosis
     Dosage: STARTING DOSE
     Route: 050
     Dates: start: 20220103, end: 20220110
  2. VUMERITY [Suspect]
     Active Substance: DIROXIMEL FUMARATE
     Dosage: MAINTENANCE DOSE
     Route: 050
     Dates: start: 20220111
  3. METFORMIN HYDROCHLORIDE [Concomitant]
     Active Substance: METFORMIN HYDROCHLORIDE
     Indication: Weight abnormal
     Route: 050
     Dates: start: 2002
  4. VALSARTAN [Concomitant]
     Active Substance: VALSARTAN
     Indication: Hypertension
     Route: 050
     Dates: start: 2010
  5. BACLOFEN [Concomitant]
     Active Substance: BACLOFEN
     Indication: Temporomandibular pain and dysfunction syndrome
     Route: 050
     Dates: start: 202110
  6. BUSPIRONE [Concomitant]
     Active Substance: BUSPIRONE HYDROCHLORIDE
     Indication: Anxiety
     Route: 050
     Dates: start: 2021
  7. MONTELUKAST SODIUM [Concomitant]
     Active Substance: MONTELUKAST SODIUM
     Indication: Multiple allergies
     Route: 050
     Dates: start: 2002
  8. LEVOTHYROXINE SODIUM [Concomitant]
     Active Substance: LEVOTHYROXINE SODIUM
     Indication: Thyroid disorder
     Route: 050
     Dates: start: 2002
  9. FLUTICASONE PROPIONATE [Concomitant]
     Active Substance: FLUTICASONE PROPIONATE
     Route: 050
  10. FLUOXETINE HYDROCHLORIDE [Concomitant]
     Active Substance: FLUOXETINE HYDROCHLORIDE
     Route: 050
  11. ACETAMINOPHEN\HYDROCODONE [Concomitant]
     Active Substance: ACETAMINOPHEN\HYDROCODONE
     Route: 050
  12. ASPIRIN [Concomitant]
     Active Substance: ASPIRIN
     Route: 050
  13. BENADRYL COLD [Concomitant]
     Route: 050
  14. FLAXSEED [Concomitant]
     Active Substance: FLAX SEED
     Route: 050
  15. D3-5 [Concomitant]
     Route: 050
  16. VITAMIN B COMPLEX [Concomitant]
     Active Substance: CYANOCOBALAMIN\DEXPANTHENOL\NIACINAMIDE\PYRIDOXINE HYDROCHLORIDE\RIBOFLAVIN 5^-PHOSPHATE SODIUM\THIA
     Route: 050
  17. VITAMIN C [Concomitant]
     Active Substance: ASCORBIC ACID
     Route: 050
  18. ALBUTEROL [Concomitant]
     Active Substance: ALBUTEROL
     Route: 050
  19. PRILOSEC [Concomitant]
     Active Substance: OMEPRAZOLE MAGNESIUM
     Route: 050

REACTIONS (10)
  - Somnolence [Not Recovered/Not Resolved]
  - Contusion [Not Recovered/Not Resolved]
  - Dizziness [Not Recovered/Not Resolved]
  - Hypoaesthesia [Unknown]
  - Temperature intolerance [Unknown]
  - Flushing [Not Recovered/Not Resolved]
  - Dyspepsia [Not Recovered/Not Resolved]
  - Nausea [Unknown]
  - Pruritus [Recovered/Resolved]
  - Feeling hot [Recovered/Resolved]

NARRATIVE: CASE EVENT DATE: 20220103
